FAERS Safety Report 18480708 (Version 1)
Quarter: 2020Q4

REPORT INFORMATION
  Report Type: Spontaneous
  Country: US (occurrence: US)
  Receive Date: 20201109
  Receipt Date: 20201109
  Transmission Date: 20210114
  Serious: No
  Sender: FDA-Public Use
  Company Number: US-009507513-2010USA009594

PATIENT
  Age: 35 Year
  Sex: Female

DRUGS (1)
  1. GANIRELIX ACETATE INJECTION [Suspect]
     Active Substance: GANIRELIX ACETATE
     Indication: INFERTILITY FEMALE
     Dosage: 250 MICROGRAM, ONCE DAILY AS DIRECTED (QD), STRENGTH: 250MCG/0.5M
     Route: 058
     Dates: start: 20201014

REACTIONS (2)
  - Pigmentation disorder [Unknown]
  - Back pain [Unknown]

NARRATIVE: CASE EVENT DATE: 202010
